FAERS Safety Report 25456305 (Version 1)
Quarter: 2025Q2

REPORT INFORMATION
  Report Type: Spontaneous
  Country: GB (occurrence: GB)
  Receive Date: 20250619
  Receipt Date: 20250619
  Transmission Date: 20250717
  Serious: Yes (Life-Threatening, Other)
  Sender: OTSUKA
  Company Number: None

PATIENT
  Age: 24 Year

DRUGS (1)
  1. ABILIFY MAINTENA [Suspect]
     Active Substance: ARIPIPRAZOLE
     Indication: Adverse drug reaction
     Route: 065
     Dates: start: 20110101

REACTIONS (1)
  - Infertility [Not Recovered/Not Resolved]

NARRATIVE: CASE EVENT DATE: 20110101
